FAERS Safety Report 10285825 (Version 1)
Quarter: 2014Q3

REPORT INFORMATION
  Report Type: Spontaneous
  Country: US (occurrence: None)
  Receive Date: 20140703
  Receipt Date: 20140703
  Transmission Date: 20150326
  Serious: Yes (Hospitalization)
  Sender: FDA-Public Use
  Company Number: UNT-2014-003014

PATIENT
  Age: 56 Year
  Sex: Male
  Weight: 112 kg

DRUGS (3)
  1. WARFARIN (WARFARIN) [Concomitant]
     Active Substance: WARFARIN
  2. REVATIO (SILDENAFIL CITRATE) [Concomitant]
  3. TYVASO [Suspect]
     Active Substance: TREPROSTINIL
     Indication: COR PULMONALE CHRONIC
     Route: 055
     Dates: start: 20111010

REACTIONS (1)
  - Dyspnoea [None]

NARRATIVE: CASE EVENT DATE: 20140617
